FAERS Safety Report 26210592 (Version 1)
Quarter: 2025Q4

REPORT INFORMATION
  Report Type: Spontaneous
  Country: US (occurrence: US)
  Receive Date: 20251230
  Receipt Date: 20251230
  Transmission Date: 20260117
  Serious: Yes (Death, Life-Threatening, Hospitalization)
  Sender: MICRO LABS LIMITED
  Company Number: US-MLMSERVICE-20251215-PI750162-00217-1

PATIENT
  Age: 83 Year
  Sex: Male

DRUGS (2)
  1. METFORMIN [Suspect]
     Active Substance: METFORMIN HYDROCHLORIDE
     Indication: Diabetes mellitus
  2. COLCHICINE [Suspect]
     Active Substance: COLCHICINE
     Indication: Pericardial effusion

REACTIONS (6)
  - Multiple organ dysfunction syndrome [Fatal]
  - Drug interaction [Fatal]
  - Toxicity to various agents [Fatal]
  - Hypotension [Fatal]
  - Acute kidney injury [Fatal]
  - Lactic acidosis [Fatal]
